FAERS Safety Report 18387152 (Version 1)
Quarter: 2020Q4

REPORT INFORMATION
  Report Type: Spontaneous
  Country: US (occurrence: US)
  Receive Date: 20201014
  Receipt Date: 20201014
  Transmission Date: 20210114
  Serious: Yes (Death)
  Sender: FDA-Public Use
  Company Number: None

PATIENT
  Age: 64 Year
  Sex: Female
  Weight: 78.9 kg

DRUGS (33)
  1. ALBUTEROL. [Concomitant]
     Active Substance: ALBUTEROL
     Dosage: ?          OTHER STRENGTH:2 PUFFS ;?
  2. BENZONATATE. [Concomitant]
     Active Substance: BENZONATATE
  3. HYDROCODONE BITARTRATE AND ACETAMINOPHEN [Concomitant]
     Active Substance: ACETAMINOPHEN\HYDROCODONE BITARTRATE
  4. IPRATROPIUM [Concomitant]
     Active Substance: IPRATROPIUM
     Dosage: ?          OTHER STRENGTH:2 PUFFS ;?
  5. MUPIROCIN. [Concomitant]
     Active Substance: MUPIROCIN
  6. ACETAMINOPHEN. [Concomitant]
     Active Substance: ACETAMINOPHEN
  7. ENOXAPARIN [Concomitant]
     Active Substance: ENOXAPARIN
     Dosage: ?          OTHER STRENGTH:60-80MG ;?
  8. ONDANSETRON [Concomitant]
     Active Substance: ONDANSETRON
  9. PROPOFOL. [Concomitant]
     Active Substance: PROPOFOL
     Dosage: ?          OTHER STRENGTH:5-50UG;?
  10. VANURONIUM [Concomitant]
     Dosage: ?          OTHER STRENGTH:0.5-1.5MCG/KG/MIN;?
  11. REMDESIVIR SOLUTION 100MG VIAL [Suspect]
     Active Substance: REMDESIVIR
     Indication: COVID-19 PNEUMONIA
     Route: 042
     Dates: start: 20200906
  12. REMDESIVIR SOLUTION 100MG VIAL [Suspect]
     Active Substance: REMDESIVIR
     Indication: COVID-19 PNEUMONIA
     Dosage: ?          OTHER FREQUENCY:Q 24 HR ;?
     Dates: start: 20200907, end: 20200910
  13. CHLORHEXIDINE [Concomitant]
     Active Substance: CHLORHEXIDINE
  14. FUROSEMIDE. [Concomitant]
     Active Substance: FUROSEMIDE
  15. DEXMEDETOMIDINE. [Concomitant]
     Active Substance: DEXMEDETOMIDINE
  16. ENALAPRIL [Concomitant]
     Active Substance: ENALAPRIL
  17. FENTANYL. [Concomitant]
     Active Substance: FENTANYL
  18. GUAIFENESIN. [Concomitant]
     Active Substance: GUAIFENESIN
  19. TAMSULOSIN [Concomitant]
     Active Substance: TAMSULOSIN
  20. DEXAMETHASONE. [Concomitant]
     Active Substance: DEXAMETHASONE
  21. GABAPENTIN. [Concomitant]
     Active Substance: GABAPENTIN
  22. HYDRALAZINE [Concomitant]
     Active Substance: HYDRALAZINE HYDROCHLORIDE
  23. INSULIN ASPART [Concomitant]
     Active Substance: INSULIN ASPART
  24. LEVOTHYROXINE. [Concomitant]
     Active Substance: LEVOTHYROXINE
  25. MELATONIN [Concomitant]
     Active Substance: MELATONIN
  26. ALPRAZOLAM. [Concomitant]
     Active Substance: ALPRAZOLAM
  27. AZITHROMYCIN ANHYDROUS. [Concomitant]
     Active Substance: AZITHROMYCIN ANHYDROUS
  28. FAMOTIDINE. [Concomitant]
     Active Substance: FAMOTIDINE
  29. NOREPINEPHRINE. [Concomitant]
     Active Substance: NOREPINEPHRINE
  30. TRAMADOL. [Concomitant]
     Active Substance: TRAMADOL
  31. CEFTRIAZONE [Concomitant]
  32. DULOXETINE. [Concomitant]
     Active Substance: DULOXETINE
  33. PIPERACILLIN AND TAZOBACTAM [Concomitant]
     Active Substance: PIPERACILLIN SODIUM\TAZOBACTAM SODIUM

REACTIONS (6)
  - Condition aggravated [None]
  - Respiratory distress [None]
  - Chest X-ray abnormal [None]
  - Hypoventilation [None]
  - Acute respiratory distress syndrome [None]
  - Shock [None]

NARRATIVE: CASE EVENT DATE: 20200925
